FAERS Safety Report 16008794 (Version 2)
Quarter: 2019Q3

REPORT INFORMATION
  Report Type: Spontaneous
  Country: US (occurrence: US)
  Receive Date: 20190226
  Receipt Date: 20190716
  Transmission Date: 20191004
  Serious: Yes (Hospitalization)
  Sender: FDA-Public Use
  Company Number: US-ACTELION-A-NJ2019-186732

PATIENT
  Age: 67 Year
  Sex: Female
  Weight: 103.4 kg

DRUGS (2)
  1. ELIQUIS [Concomitant]
     Active Substance: APIXABAN
  2. TRACLEER [Suspect]
     Active Substance: BOSENTAN
     Indication: PULMONARY ARTERIAL HYPERTENSION
     Dosage: 125 MG, BID
     Route: 048

REACTIONS (9)
  - Cerebrovascular accident [Unknown]
  - Syncope [Unknown]
  - Muscular weakness [Unknown]
  - Asthenia [Unknown]
  - Anal incontinence [Unknown]
  - Pain in extremity [Unknown]
  - Dysarthria [Unknown]
  - Dizziness [Unknown]
  - Metamorphopsia [Unknown]

NARRATIVE: CASE EVENT DATE: 20190701
